FAERS Safety Report 14528128 (Version 3)
Quarter: 2018Q2

REPORT INFORMATION
  Report Type: Spontaneous
  Country: FR (occurrence: FR)
  Receive Date: 20180213
  Receipt Date: 20180410
  Transmission Date: 20180711
  Serious: Yes (Death, Hospitalization, Other)
  Sender: FDA-Public Use
  Company Number: FR-MERCK KGAA-2041921

PATIENT
  Age: 61 Year
  Sex: Female
  Weight: 57 kg

DRUGS (5)
  1. NOVOTHYROX [Suspect]
     Active Substance: LEVOTHYROXINE SODIUM
     Route: 048
     Dates: start: 20171201
  2. TEMERIT [Concomitant]
     Active Substance: NEBIVOLOL
     Route: 048
  3. PRAVASTATIN. [Concomitant]
     Active Substance: PRAVASTATIN
     Route: 048
  4. SUTENT [Suspect]
     Active Substance: SUNITINIB MALATE
     Route: 048
     Dates: start: 20161013
  5. NOVOTHYROX [Suspect]
     Active Substance: LEVOTHYROXINE SODIUM
     Indication: HYPOTHYROIDISM
     Route: 048
     Dates: start: 20161130

REACTIONS (15)
  - Hypothyroidism [Unknown]
  - Prothrombin time shortened [Unknown]
  - Blood bilirubin increased [None]
  - International normalised ratio increased [None]
  - Asthenia [Unknown]
  - Aspartate aminotransferase increased [None]
  - Cholestasis [Unknown]
  - Alanine aminotransferase increased [None]
  - Hepatocellular injury [Unknown]
  - Drug interaction [Unknown]
  - Hepatic failure [Fatal]
  - Thrombocytopenia [Unknown]
  - Gamma-glutamyltransferase abnormal [None]
  - Nausea [Unknown]
  - Bilirubin conjugated increased [None]

NARRATIVE: CASE EVENT DATE: 2017
